FAERS Safety Report 8830560 (Version 2)
Quarter: 2012Q4

REPORT INFORMATION
  Report Type: 
  Country: US (occurrence: US)
  Receive Date: 20121009
  Receipt Date: 20121116
  Transmission Date: 20130627
  Serious: Yes (Hospitalization, Other)
  Sender: FDA-Public Use
  Company Number: US-PFIZER INC-2012246949

PATIENT
  Age: 60 Year
  Sex: Male
  Weight: 107 kg

DRUGS (7)
  1. LYRICA [Suspect]
     Indication: DEPRESSION
     Dosage: 100mg capsule in morning and 150 mg in evening
     Route: 048
     Dates: start: 201207
  2. LYRICA [Suspect]
     Indication: NEUROPATHY PERIPHERAL
  3. LYRICA [Suspect]
     Indication: FIBROMYALGIA
  4. ADVAIR 550/50 [Concomitant]
     Indication: CHRONIC OBSTRUCTIVE PULMONARY DISEASE
     Dosage: UNK, 2x/day
  5. SPIRIVA [Concomitant]
     Indication: CHRONIC OBSTRUCTIVE PULMONARY DISEASE
     Dosage: UNK, daily
  6. ALBUTEROL [Concomitant]
     Indication: CHRONIC OBSTRUCTIVE PULMONARY DISEASE
     Dosage: UNK, as needed
  7. COMBIVENT [Concomitant]
     Indication: CHRONIC OBSTRUCTIVE PULMONARY DISEASE
     Dosage: UNK, as needed

REACTIONS (4)
  - Chronic obstructive pulmonary disease [Unknown]
  - Hypertension [Unknown]
  - Haematochezia [Unknown]
  - Anaemia [Unknown]
